FAERS Safety Report 8604764-2 (Version None)
Quarter: 2012Q3

REPORT INFORMATION
  Report Type: 
  Country: None (occurrence: None)
  Receive Date: 20120820
  Receipt Date: 20120816
  Transmission Date: 20120928
  Serious: No
  Sender: FDA-Public Use
  Company Number: US-PFIZER INC-2012161826

PATIENT
  Age: 39 Year
  Sex: Female
  Weight: 54.422 kg

DRUGS (2)
  1. METOPROLOL [Concomitant]
     Indication: HYPERTENSION
     Dosage: UNK
  2. PRISTIQ [Suspect]
     Indication: DEPRESSION
     Dosage: 50 MG, 1X/DAY
     Route: 048
     Dates: start: 20111201

REACTIONS (4)
  - WITHDRAWAL SYNDROME [None]
  - DRUG INEFFECTIVE [None]
  - CRYING [None]
  - DIZZINESS [None]
